FAERS Safety Report 24881616 (Version 1)
Quarter: 2025Q1

REPORT INFORMATION
  Report Type: Spontaneous
  Country: US (occurrence: US)
  Receive Date: 20250124
  Receipt Date: 20250124
  Transmission Date: 20250408
  Serious: Yes (Other)
  Sender: Haleon PLC
  Company Number: US-HALEON-2224744

PATIENT
  Age: 36 Year
  Sex: Female
  Weight: 58.9 kg

DRUGS (18)
  1. NICODERM CQ [Suspect]
     Active Substance: NICOTINE
     Indication: Product used for unknown indication
     Dosage: (1 DOSAGE FORM, 1 IN 24 HOUR)
     Route: 061
     Dates: start: 20241002
  2. MAGNESIUM OXIDE [Suspect]
     Active Substance: MAGNESIUM OXIDE
     Indication: Migraine
     Route: 048
     Dates: start: 20240717
  3. MAGNESIUM OXIDE [Suspect]
     Active Substance: MAGNESIUM OXIDE
     Indication: Migraine prophylaxis
  4. LEVOMEFOLIC ACID [Suspect]
     Active Substance: LEVOMEFOLIC ACID
     Indication: Product used for unknown indication
     Route: 048
     Dates: start: 20240717
  5. MOTRIN [Suspect]
     Active Substance: IBUPROFEN
     Indication: Pain
     Dosage: 200 MILLIGRAM; 4.0 DOSAGE FORM (1 DOSAGE FORM, 1 IN 6 HOUR)
     Route: 048
  6. VITAMIN D3 [Suspect]
     Active Substance: CHOLECALCIFEROL
     Indication: Product used for unknown indication
     Dosage: FORM STRENGTH:  5000 IU (INTERNATIONAL UNIT)
     Route: 048
  7. ZOMIG [Suspect]
     Active Substance: ZOLMITRIPTAN
     Indication: Migraine
     Route: 048
     Dates: start: 20240717
  8. ZOFRAN [Suspect]
     Active Substance: ONDANSETRON HYDROCHLORIDE
     Indication: Nausea
     Dosage: FORM STRENGTH: 4 MILLIGRAMS; 2.0 DOSAGE FORM (1 DOSAGE FORM, 2 IN 1 DAY)
     Route: 048
     Dates: end: 20241113
  9. WELLBUTRIN [Suspect]
     Active Substance: BUPROPION HYDROCHLORIDE
     Indication: Product used for unknown indication
     Dosage: 1.0 DOSAGE FORM (1 DOSAGE FORM, 1 IN 1 DAY); TAKE 1 PO DAILY X 1 WEEK; THEN 1 TABLET TWICE A DAY
     Route: 048
  10. WELLBUTRIN [Suspect]
     Active Substance: BUPROPION HYDROCHLORIDE
     Dosage: 150 MILLIGRAM; 2.0 DOSAGE FORM (1 DOSAGE FORM, 2 IN 1 DAY); TAKE 1 PO DAILY X 1 WEEK; THEN 1 TABL...
     Route: 048
  11. FIORICET [Suspect]
     Active Substance: ACETAMINOPHEN\BUTALBITAL\CAFFEINE
     Indication: Product used for unknown indication
     Dosage: 3.0 DOSAGE FORM (1 DOSAGE FORM, 1 IN 8 HOUR)
     Route: 048
     Dates: end: 20241113
  12. KESIMPTA [Suspect]
     Active Substance: OFATUMUMAB
     Indication: Product used for unknown indication
     Dosage: 2.857 MILLIGRAM(S) (20 MILLIGRAM(S), 1 IN 1 WEEK); STRENGTH: 20 MG/0.4ML INJECT 20 MG UNDER THE S...
     Route: 058
  13. KESIMPTA [Suspect]
     Active Substance: OFATUMUMAB
     Dosage: 0.666 MILLIGRAM(S) (20 MILLIGRAM(S), 1 IN 30 DAY); STRENGTH: 20 MG/0.4ML INJECT 20 MG UNDER THE S...
     Route: 058
  14. LYRICA [Suspect]
     Active Substance: PREGABALIN
     Indication: Paraesthesia
     Dosage: 75 MILLIGRAM; 2.0 DOSAGE FORM (1 DOSAGE FORM, 2 IN 1 DAY)
     Route: 048
  15. LYRICA [Suspect]
     Active Substance: PREGABALIN
     Dosage: 75 MILLIGRAM; 2.0 DOSAGE FORM (1 DOSAGE FORM, 2 IN 1 DAY)
     Route: 048
  16. TYLENOL [Suspect]
     Active Substance: ACETAMINOPHEN
     Indication: Pain
     Dosage: 500 MILLIGRAMS; 4.0 DOSAGE FORM (1 DOSAGE FORM, 1 IN 6 HOUR)
     Route: 048
  17. FERROUS SULFATE [Suspect]
     Active Substance: FERROUS SULFATE
     Indication: Product used for unknown indication
     Dosage: 9 MILLIGRAM; 2.0 DOSAGE FORM (2 DOSAGE FORM, 1 IN 1 DAY)
     Route: 048
  18. ASPIRIN [Suspect]
     Active Substance: ASPIRIN
     Indication: Product used for unknown indication
     Dosage: FORM STRENGTH: 81 MILLIGRAM; 1.0 DOSAGE FORM (1 DOSAGE FORM, 1 IN 1 DAY)
     Route: 048

REACTIONS (3)
  - Multiple sclerosis [Unknown]
  - Paraesthesia [Unknown]
  - Hypoaesthesia [Unknown]
